FAERS Safety Report 10416470 (Version 2)
Quarter: 2014Q3

REPORT INFORMATION
  Report Type: Spontaneous
  Country: US (occurrence: None)
  Receive Date: 20140826
  Receipt Date: 20140922
  Transmission Date: 20150326
  Serious: Yes (Hospitalization, Other)
  Sender: FDA-Public Use
  Company Number: 2014-US-010318

PATIENT
  Age: 48 Year
  Sex: Female

DRUGS (6)
  1. REQUIP (ROPINIROLE JYDROCHLORIDE) [Concomitant]
  2. VYVANSE [Concomitant]
     Active Substance: LISDEXAMFETAMINE DIMESYLATE
  3. PROPRANOLOL (PROPRANOLOL HYDROCHLORIDE) [Concomitant]
  4. XYREM [Suspect]
     Active Substance: SODIUM OXYBATE
     Indication: NARCOLEPSY
     Route: 048
     Dates: start: 201404, end: 2014
  5. TRIAZOLAM. [Concomitant]
     Active Substance: TRIAZOLAM
  6. NEXIUM [Concomitant]
     Active Substance: ESOMEPRAZOLE MAGNESIUM

REACTIONS (6)
  - Hypothyroidism [None]
  - Heart rate decreased [None]
  - Asthenia [None]
  - Blood pressure increased [None]
  - Dizziness [None]
  - Hypertension [None]

NARRATIVE: CASE EVENT DATE: 201406
